FAERS Safety Report 18497555 (Version 1)
Quarter: 2020Q4

REPORT INFORMATION
  Report Type: Spontaneous
  Country: GB (occurrence: GB)
  Receive Date: 20201112
  Receipt Date: 20201112
  Transmission Date: 20210114
  Serious: Yes (Disabling, Other)
  Sender: FDA-Public Use
  Company Number: NVSC2020GB298546

PATIENT
  Age: 41 Year
  Sex: Female
  Weight: 143 kg

DRUGS (2)
  1. PHENOXYMETHYLPENICILLIN (= PENICILLIN V) [Suspect]
     Active Substance: PENICILLIN V
     Indication: PHARYNGITIS
     Dosage: 8 DF, QD
     Route: 048
     Dates: start: 20201012
  2. FEXOFENADINE HYDROCHLORIDE. [Concomitant]
     Active Substance: FEXOFENADINE HYDROCHLORIDE
     Indication: PRODUCT USED FOR UNKNOWN INDICATION
     Dosage: UNK
     Route: 065

REACTIONS (8)
  - Abdominal pain upper [Unknown]
  - Headache [Unknown]
  - Nausea [Not Recovered/Not Resolved]
  - Tremor [Unknown]
  - Gastrointestinal sounds abnormal [Unknown]
  - Fatigue [Unknown]
  - Diarrhoea [Unknown]
  - Hyperhidrosis [Unknown]

NARRATIVE: CASE EVENT DATE: 20201012
